FAERS Safety Report 8610403-7 (Version None)
Quarter: 2012Q3

REPORT INFORMATION
  Report Type: 
  Country: None (occurrence: None)
  Receive Date: 20120822
  Receipt Date: 20120820
  Transmission Date: 20120928
  Serious: Yes (Death, Other)
  Sender: FDA-Public Use
  Company Number: PHHY2012FR010644

PATIENT
  Age: 77 Year
  Sex: Male

DRUGS (7)
  1. RABEPRAZOLE SODIUM [Concomitant]
  2. NAFTIDROFURYL [Concomitant]
  3. PLAVIX [Concomitant]
  4. DIAMICRON [Concomitant]
  5. IRBESARTAN [Concomitant]
  6. IMATINIB MESYLATE [Suspect]
     Indication: CHRONIC MYELOID LEUKAEMIA
     Dosage: 400 MG, DAILY
     Route: 048
     Dates: start: 20030630, end: 20120215
  7. MEDIATENSYL [Concomitant]

REACTIONS (5)
  - METASTASES TO BONE [None]
  - HEPATIC NEOPLASM MALIGNANT [None]
  - DEATH [None]
  - CHOLESTASIS [None]
  - NEOPLASM MALIGNANT [None]
